FAERS Safety Report 6609060-0 (Version None)
Quarter: 2010Q1

REPORT INFORMATION
  Report Type: 
  Country: None (occurrence: None)
  Receive Date: 20100224
  Receipt Date: 20100224
  Transmission Date: 20100710
  Serious: Yes (Other)
  Sender: FDA-Public Use
  Company Number: None

PATIENT
  Sex: Female
  Weight: 68.0396 kg

DRUGS (1)
  1. ARMOUR THYROID 125 ML FOREST PHARMACEUTICALS [Suspect]
     Indication: HYPOTHYROIDISM
     Dosage: 1 TABLE EACH DAY
     Dates: start: 20000101, end: 20090901

REACTIONS (4)
  - FEELING ABNORMAL [None]
  - IMPAIRED WORK ABILITY [None]
  - PRODUCT SUBSTITUTION ISSUE [None]
  - UNEMPLOYMENT [None]
